FAERS Safety Report 18017942 (Version 1)
Quarter: 2020Q3

REPORT INFORMATION
  Report Type: Other
  Country: ES (occurrence: ES)
  Receive Date: 20200714
  Receipt Date: 20200714
  Transmission Date: 20201103
  Serious: Yes (Life-Threatening, Hospitalization)
  Sender: FDA-Public Use
  Company Number: ES-CADILA HEALTHCARE LIMITED-ES-ZYDUS-050965

PATIENT

DRUGS (5)
  1. OMEPRAZOLE. [Suspect]
     Active Substance: OMEPRAZOLE
     Indication: SUICIDE ATTEMPT
     Dosage: 300 MILLIGRAM,TOTAL
     Route: 048
     Dates: start: 20200305, end: 20200305
  2. PARACETAMOL [Suspect]
     Active Substance: ACETAMINOPHEN
     Indication: SUICIDE ATTEMPT
     Dosage: 61 GRAM (TOTAL)
     Route: 048
     Dates: start: 20200305, end: 20200305
  3. DEXKETOPROFEN [Suspect]
     Active Substance: DEXKETOPROFEN
     Indication: SUICIDE ATTEMPT
     Dosage: 500 MILLIGRAM,(TOTAL)
     Route: 048
     Dates: start: 20200305, end: 20200305
  4. IBUPROFEN. [Suspect]
     Active Substance: IBUPROFEN
     Indication: SUICIDE ATTEMPT
     Dosage: 24 GRAM, TOTAL
     Route: 048
     Dates: start: 20200305, end: 20200305
  5. PERMIXON [Suspect]
     Active Substance: HERBALS\SAW PALMETTO
     Indication: SUICIDE ATTEMPT
     Dosage: 2400 MILLIGRAM,TOTAL
     Route: 048
     Dates: start: 20200305, end: 20200305

REACTIONS (3)
  - Metabolic acidosis [Recovered/Resolved]
  - Bradyphrenia [Recovered/Resolved]
  - Vomiting [Recovered/Resolved]

NARRATIVE: CASE EVENT DATE: 20200305
